FAERS Safety Report 26023860 (Version 2)
Quarter: 2025Q4

REPORT INFORMATION
  Report Type: Spontaneous
  Country: US (occurrence: US)
  Receive Date: 20251111
  Receipt Date: 20251211
  Transmission Date: 20260118
  Serious: No
  Sender: NOVARTIS
  Company Number: US-002147023-NVSC2025US173422

PATIENT
  Age: 35 Year
  Sex: Female
  Weight: 97 kg

DRUGS (1)
  1. RHAPSIDO [Suspect]
     Active Substance: REMIBRUTINIB
     Indication: Chronic spontaneous urticaria
     Dosage: UNK UNK, BID
     Route: 048
     Dates: start: 20251028, end: 20251031

REACTIONS (2)
  - Petechiae [Recovered/Resolved]
  - Blood blister [Unknown]

NARRATIVE: CASE EVENT DATE: 20251030
